FAERS Safety Report 17292139 (Version 1)
Quarter: 2020Q1

REPORT INFORMATION
  Report Type: Spontaneous
  Country: DE (occurrence: DE)
  Receive Date: 20200121
  Receipt Date: 20200121
  Transmission Date: 20200409
  Serious: Yes (Hospitalization)
  Sender: FDA-Public Use
  Company Number: DE-BAYER-2019-222535

PATIENT
  Age: 65 Year
  Sex: Male
  Weight: 80 kg

DRUGS (15)
  1. METAMIZOL [Concomitant]
     Active Substance: METAMIZOLE SODIUM
     Dosage: 500 MG, 1-1-1-1, TABLETTEN
     Route: 048
  2. INSULIN GLARGINE [Concomitant]
     Active Substance: INSULIN GLARGINE
     Dosage: 100 IE, 0-0-0-12, INJEKTIONS-/INFUSIONSL?SUNG
     Route: 058
  3. CARBOPLATIN. [Concomitant]
     Active Substance: CARBOPLATIN
     Dosage: NK MG/KG/KG, NACH SCHEMA, ZULETZT AM 20.12.2017, INJEKTIONS-/INFUSIONSL?SUNG
     Route: 042
  4. IBUPROFEN. [Concomitant]
     Active Substance: IBUPROFEN
     Dosage: 600 MG, 1-0-1-0, TABLETTEN
     Route: 048
  5. THIAMAZOL [Concomitant]
     Active Substance: METHIMAZOLE
     Dosage: 10 MG, 1-0-0-1, TABLETTEN
     Route: 048
  6. DIHYDROCODEINE [Concomitant]
     Active Substance: DIHYDROCODEINE
     Dosage: 10 MG, 0-0-16-0, TROPFEN
     Route: 048
  7. RAMIPRIL. [Concomitant]
     Active Substance: RAMIPRIL
     Dosage: 5 MG, 1-0-0-0, TABLETTEN
     Route: 048
  8. ETOPOSID [Concomitant]
     Active Substance: ETOPOSIDE
     Dosage: NK MG/KG/KG, ULETZT AM 20.12.2017, INJEKTIONS-/INFUSIONSL?SUNG
     Route: 042
  9. METFORMIN [Concomitant]
     Active Substance: METFORMIN HYDROCHLORIDE
     Dosage: 1000 MG, 1-0-1-0, TABLETTEN
     Route: 048
  10. ATORVASTATIN [Concomitant]
     Active Substance: ATORVASTATIN
     Dosage: 21.65 MG, 0-0-1-0, TABLETTEN
     Route: 048
  11. ULTIBRO BREEZHALER [Concomitant]
     Active Substance: GLYCOPYRRONIUM\INDACATEROL
     Dosage: 63|143 ?G, 1-0-0-0, DOSIERAEROSOL
     Route: 055
  12. DENOSUMAB [Concomitant]
     Active Substance: DENOSUMAB
     Dosage: NK NK, NACH SCHEMA, ZULETZT AM 05.12.2017, INJEKTIONS-/INFUSIONSL?SUNG
     Route: 042
  13. PANTOPRAZOL [PANTOPRAZOLE] [Concomitant]
     Active Substance: PANTOPRAZOLE
     Dosage: 20 MG, 1-0-0-0, TABLETTEN
     Route: 048
  14. IOPROMIDE. [Suspect]
     Active Substance: IOPROMIDE
     Dosage: NK MG/KG/KG, ACCORDING SCHEMA, INJECTION-/INFUSION SOLUTION
     Route: 042
  15. MACROGOL ABZ BALANCE [Concomitant]
     Dosage: 13.1|351|179|47 MG, 0-0-1-0, BEUTEL
     Route: 048

REACTIONS (1)
  - Renal impairment [Unknown]

NARRATIVE: CASE EVENT DATE: 20171218
